FAERS Safety Report 14127344 (Version 1)
Quarter: 2017Q4

REPORT INFORMATION
  Report Type: Other
  Country: CA (occurrence: CA)
  Receive Date: 20171026
  Receipt Date: 20171026
  Transmission Date: 20180321
  Serious: Yes (Hospitalization)
  Sender: FDA-Public Use
  Company Number: CA-APOTEX-2017AP020081

PATIENT
  Age: 7 Year
  Sex: Female

DRUGS (3)
  1. APO-CLONIDINE [Suspect]
     Active Substance: CLONIDINE HYDROCHLORIDE
     Indication: PRODUCT USED FOR UNKNOWN INDICATION
     Dosage: UNK
     Route: 065
  2. GUANFACINE HYDROCHLORIDE. [Suspect]
     Active Substance: GUANFACINE HYDROCHLORIDE
     Indication: PRODUCT USED FOR UNKNOWN INDICATION
     Dosage: 2 MG, QD
     Route: 048
  3. VYVANSE [Suspect]
     Active Substance: LISDEXAMFETAMINE DIMESYLATE
     Indication: ATTENTION DEFICIT/HYPERACTIVITY DISORDER
     Dosage: 30 MG, QD
     Route: 048

REACTIONS (5)
  - Initial insomnia [Recovering/Resolving]
  - No adverse event [Recovering/Resolving]
  - Anxiety [Recovering/Resolving]
  - Obsessive-compulsive disorder [Recovering/Resolving]
  - Defiant behaviour [Recovering/Resolving]
